FAERS Safety Report 6930164-7 (Version None)
Quarter: 2010Q3

REPORT INFORMATION
  Report Type: 
  Country: None (occurrence: None)
  Receive Date: 20100818
  Receipt Date: 20100809
  Transmission Date: 20110219
  Serious: Yes (Other)
  Sender: FDA-Public Use
  Company Number: JP-PFIZER INC-2010087159

PATIENT
  Age: 67 Year
  Sex: Male

DRUGS (2)
  1. LIPITOR [Suspect]
     Dosage: 10 MG, 1X/DAY
     Route: 048
     Dates: start: 20091001, end: 20100605
  2. ASPIRIN [Concomitant]
     Dosage: UNK
     Route: 048
     Dates: start: 20080101

REACTIONS (2)
  - CATARACT [None]
  - MYALGIA [None]
